FAERS Safety Report 4403773-7 (Version None)
Quarter: 2004Q3

REPORT INFORMATION
  Report Type: 
  Country: None (occurrence: None)
  Receive Date: 20040719
  Receipt Date: 20040706
  Transmission Date: 20050211
  Serious: Yes (Other)
  Sender: FDA-Public Use
  Company Number: 163-20785-04070318 (0)

PATIENT

DRUGS (1)
  1. THALOMID [Suspect]
     Indication: NON-SMALL CELL LUNG CANCER STAGE III
     Dosage: ORAL
     Route: 048

REACTIONS (5)
  - CHRONIC OBSTRUCTIVE AIRWAYS DISEASE EXACERBATED [None]
  - INFECTION [None]
  - LUNG INFILTRATION [None]
  - PNEUMONITIS [None]
  - PULMONARY EMBOLISM [None]
